FAERS Safety Report 17764341 (Version 2)
Quarter: 2020Q2

REPORT INFORMATION
  Report Type: Spontaneous
  Country: FR (occurrence: FR)
  Receive Date: 20200511
  Receipt Date: 20200602
  Transmission Date: 20200714
  Serious: Yes (Death)
  Sender: FDA-Public Use
  Company Number: FR-CURIUM-202000155

PATIENT
  Age: 88 Year
  Sex: Male
  Weight: 60 kg

DRUGS (5)
  1. ULTRA-TECHNEKOW [Suspect]
     Active Substance: TECHNETIUM TC-99M
     Indication: PULMONARY IMAGING PROCEDURE
     Route: 042
     Dates: start: 20200427, end: 20200427
  2. PULMOCIS [Suspect]
     Active Substance: TECHNETIUM TC-99M MEDRONATE
     Indication: PULMONARY IMAGING PROCEDURE
     Route: 042
     Dates: start: 20200427, end: 20200427
  3. TECHNEGAS [Concomitant]
     Indication: VENTILATION/PERFUSION SCAN
     Dates: start: 20200427, end: 20200427
  4. PULMOTEC [Concomitant]
     Indication: VENTILATION/PERFUSION SCAN
     Route: 055
     Dates: start: 20200427, end: 20200427
  5. ULTRA-TECHNEKOW [Suspect]
     Active Substance: TECHNETIUM TC-99M
     Indication: PULMONARY IMAGING PROCEDURE
     Route: 055
     Dates: start: 20200427, end: 20200427

REACTIONS (1)
  - Cardiac arrest [Fatal]

NARRATIVE: CASE EVENT DATE: 20200427
